FAERS Safety Report 5672852-9 (Version None)
Quarter: 2008Q1

REPORT INFORMATION
  Report Type: 
  Country: None (occurrence: None)
  Receive Date: 20080319
  Receipt Date: 20080313
  Transmission Date: 20080703
  Serious: Yes (Life-Threatening)
  Sender: FDA-Public Use
  Company Number: JP-ABBOTT-08P-087-0440180-00

PATIENT
  Sex: Female
  Weight: 33.6 kg

DRUGS (9)
  1. KLARICID TABLETS [Suspect]
     Indication: COUGH
     Route: 048
     Dates: start: 20080225, end: 20080226
  2. TIPEPIDINE HIBENZATE [Concomitant]
     Indication: NASOPHARYNGITIS
     Route: 048
     Dates: start: 20080225, end: 20080306
  3. L-CARBOCISTEINE [Concomitant]
     Indication: DRUG USE FOR UNKNOWN INDICATION
     Route: 048
  4. AMLODIPINE BESYLATE [Concomitant]
     Indication: DRUG USE FOR UNKNOWN INDICATION
     Route: 048
  5. CANDESARTAN CILEXETIL [Concomitant]
     Indication: DRUG USE FOR UNKNOWN INDICATION
     Route: 048
  6. FUROSEMIDE [Concomitant]
     Indication: DRUG USE FOR UNKNOWN INDICATION
     Route: 048
  7. TRICHLORMETHIAZIDE [Concomitant]
     Indication: CARDIAC FAILURE
     Route: 048
     Dates: start: 20071214
  8. FERROUS CITRATE [Concomitant]
     Indication: DRUG USE FOR UNKNOWN INDICATION
     Route: 048
  9. TRIAZOLAM [Concomitant]
     Indication: DRUG USE FOR UNKNOWN INDICATION
     Route: 048

REACTIONS (4)
  - BRONCHOSPASM [None]
  - HYPERCAPNIA [None]
  - RENAL DISORDER [None]
  - RHABDOMYOLYSIS [None]
